FAERS Safety Report 12234652 (Version 5)
Quarter: 2017Q1

REPORT INFORMATION
  Report Type: Report from Study
  Country: JP (occurrence: JP)
  Receive Date: 20160404
  Receipt Date: 20170114
  Transmission Date: 20170428
  Serious: Yes (Hospitalization, Other)
  Sender: FDA-Public Use
  Company Number: JP-AMGEN-JPNCT2016020647

PATIENT
  Age: 67 Year
  Sex: Female
  Weight: 55.3 kg

DRUGS (6)
  1. CALCIUM LEVOFOLINATE [Concomitant]
     Active Substance: LEVOLEUCOVORIN CALCIUM
     Indication: COLON CANCER
     Dosage: 275 MG, Q2WEEKS
     Route: 041
     Dates: start: 20151127, end: 20160305
  2. 5-FU [Suspect]
     Active Substance: FLUOROURACIL
     Indication: COLON CANCER
     Dosage: 550 MG, Q2WEEKS
     Route: 040
     Dates: start: 20151127, end: 20160305
  3. OXALIPLATIN. [Suspect]
     Active Substance: OXALIPLATIN
     Indication: COLON CANCER
     Dosage: 120 MG, Q2WEEKS
     Route: 041
     Dates: start: 20151127, end: 20160305
  4. OXALIPLATIN. [Suspect]
     Active Substance: OXALIPLATIN
     Indication: COLON CANCER
  5. 5-FU [Suspect]
     Active Substance: FLUOROURACIL
     Dosage: 3550 MG, Q2WEEKS
     Route: 041
     Dates: start: 20151127, end: 20160305
  6. PANITUMUMAB [Suspect]
     Active Substance: PANITUMUMAB
     Indication: COLON CANCER
     Dosage: 330 MG, Q2WEEKS
     Route: 041
     Dates: start: 20151127, end: 20160220

REACTIONS (6)
  - Paronychia [Unknown]
  - Pulmonary artery thrombosis [Recovering/Resolving]
  - Neutrophil count decreased [Unknown]
  - Pigmentation disorder [Recovered/Resolved]
  - Jugular vein thrombosis [Recovering/Resolving]
  - Rash [Unknown]

NARRATIVE: CASE EVENT DATE: 20160318
